FAERS Safety Report 6389754-5 (Version None)
Quarter: 2009Q4

REPORT INFORMATION
  Report Type: 
  Country: None (occurrence: None)
  Receive Date: 20091002
  Receipt Date: 20091002
  Transmission Date: 20100525
  Serious: No
  Sender: FDA-Public Use
  Company Number: None

PATIENT

DRUGS (1)
  1. ADENOSINE [Suspect]

REACTIONS (2)
  - MEDICAL DEVICE COMPLICATION [None]
  - SYRINGE ISSUE [None]
